FAERS Safety Report 13344158 (Version 1)
Quarter: 2017Q1

REPORT INFORMATION
  Report Type: Spontaneous
  Country: US (occurrence: US)
  Receive Date: 20170316
  Receipt Date: 20170316
  Transmission Date: 20170428
  Serious: No
  Sender: FDA-Public Use
  Company Number: US-ASTRAZENECA-2017SE27244

PATIENT
  Age: 75 Year
  Sex: Female
  Weight: 56.2 kg

DRUGS (3)
  1. TRACLEER [Concomitant]
     Active Substance: BOSENTAN
  2. TADALAFIL [Concomitant]
     Active Substance: TADALAFIL
  3. PRILOSEC [Suspect]
     Active Substance: OMEPRAZOLE MAGNESIUM
     Indication: GASTRITIS
     Route: 048
     Dates: start: 2016

REACTIONS (4)
  - Off label use [Unknown]
  - Gastritis [Unknown]
  - Platelet count decreased [Unknown]
  - Product use issue [Unknown]
